FAERS Safety Report 9904481 (Version 1)
Quarter: 2014Q1

REPORT INFORMATION
  Report Type: Report from Study
  Country: CA (occurrence: CA)
  Receive Date: 20140218
  Receipt Date: 20140218
  Transmission Date: 20141002
  Serious: Yes (Other)
  Sender: FDA-Public Use
  Company Number: CA-JNJFOC-20140208057

PATIENT
  Age: 41 Year
  Sex: Female
  Weight: 64.4 kg

DRUGS (4)
  1. REMICADE [Suspect]
     Indication: CROHN^S DISEASE
     Dosage: ^8/52^
     Route: 042
     Dates: start: 20120821
  2. OLESTYR [Concomitant]
     Route: 065
  3. VENOFER [Concomitant]
     Route: 042
  4. VITAMIN B12 [Concomitant]
     Route: 065

REACTIONS (3)
  - Diarrhoea haemorrhagic [Recovering/Resolving]
  - Haemoglobin decreased [Recovering/Resolving]
  - Menorrhagia [Recovering/Resolving]
